FAERS Safety Report 22175916 (Version 1)
Quarter: 2023Q2

REPORT INFORMATION
  Report Type: Spontaneous
  Country: CH (occurrence: CH)
  Receive Date: 20230405
  Receipt Date: 20230405
  Transmission Date: 20230721
  Serious: Yes (Other)
  Sender: FDA-Public Use
  Company Number: CH-GLAXOSMITHKLINE-CH2023GSK048415

PATIENT

DRUGS (16)
  1. VALACYCLOVIR HYDROCHLORIDE [Suspect]
     Active Substance: VALACYCLOVIR HYDROCHLORIDE
     Indication: Herpes simplex
     Dosage: 500 MG, BID
     Route: 048
  2. VALACYCLOVIR HYDROCHLORIDE [Suspect]
     Active Substance: VALACYCLOVIR HYDROCHLORIDE
     Dosage: 1 G PER 8 HOUR
     Route: 048
  3. FOSCARNET [Concomitant]
     Active Substance: FOSCARNET
     Indication: Herpes simplex
     Dosage: 40 MG/KG, TID
     Route: 042
  4. CIDOFOVIR [Concomitant]
     Active Substance: CIDOFOVIR
     Indication: Oral viral infection
     Dosage: 5 MG/KG, ONCE WEEKLY FOR 3 WEEKS
     Route: 042
  5. TACROLIMUS [Concomitant]
     Active Substance: TACROLIMUS
     Indication: Immunosuppression
     Dosage: UNK
  6. CYCLOSPORINE [Concomitant]
     Active Substance: CYCLOSPORINE
     Indication: Immunosuppression
     Dosage: UNK
  7. MYCOPHENOLATE MOFETIL [Concomitant]
     Active Substance: MYCOPHENOLATE MOFETIL
     Indication: Immunosuppression
     Dosage: UNK
  8. RUXOLITINIB [Concomitant]
     Active Substance: RUXOLITINIB
     Indication: Immunosuppression
     Dosage: UNK
  9. ETANERCEPT [Concomitant]
     Active Substance: ETANERCEPT
     Indication: Immunosuppression
     Dosage: UNK
  10. TOCILIZUMAB [Concomitant]
     Active Substance: TOCILIZUMAB
     Indication: Immunosuppression
     Dosage: UNK
  11. IBRUTINIB [Concomitant]
     Active Substance: IBRUTINIB
     Indication: Immunosuppression
     Dosage: UNK
  12. PREDNISONE [Concomitant]
     Active Substance: PREDNISONE
     Indication: Product used for unknown indication
     Dosage: 80 MG, QD
  13. PREDNISONE [Concomitant]
     Active Substance: PREDNISONE
     Dosage: 70 MG, QD
  14. PREDNISONE [Concomitant]
     Active Substance: PREDNISONE
     Dosage: 100 MG, QD
  15. PREDNISONE [Concomitant]
     Active Substance: PREDNISONE
     Dosage: 55 MG, QD
  16. PREDNISONE [Concomitant]
     Active Substance: PREDNISONE
     Dosage: 50 MG, QD

REACTIONS (2)
  - Pathogen resistance [Unknown]
  - Drug resistance [Unknown]
